FAERS Safety Report 23181022 (Version 1)
Quarter: 2023Q4

REPORT INFORMATION
  Report Type: Spontaneous
  Country: CZ (occurrence: CZ)
  Receive Date: 20231114
  Receipt Date: 20231114
  Transmission Date: 20240110
  Serious: Yes (Hospitalization)
  Sender: FDA-Public Use
  Company Number: CZ-ELI_LILLY_AND_COMPANY-CZ202311001309

PATIENT
  Age: 24 Year
  Sex: Male

DRUGS (3)
  1. OLANZAPINE PAMOATE [Suspect]
     Active Substance: OLANZAPINE PAMOATE
     Indication: Schizophrenia
     Dosage: 405 MG, OTHER (EVERY 4 WEEKS)/LONG-ACTING INJECTION
     Route: 030
     Dates: start: 20231030
  2. OLANZAPINE PAMOATE [Suspect]
     Active Substance: OLANZAPINE PAMOATE
     Indication: Schizophrenia
     Dosage: 405 MG, OTHER (EVERY 4 WEEKS)/LONG-ACTING INJECTION
     Route: 030
  3. RISPERDAL CONSTA [Concomitant]
     Active Substance: RISPERIDONE
     Indication: Product used for unknown indication

REACTIONS (5)
  - Feeling drunk [Recovered/Resolved]
  - Post-injection delirium sedation syndrome [Recovered/Resolved]
  - Agitation [Recovered/Resolved]
  - Restlessness [Recovered/Resolved]
  - Product administered at inappropriate site [Unknown]

NARRATIVE: CASE EVENT DATE: 20231030
